FAERS Safety Report 4631579-2 (Version None)
Quarter: 2005Q2

REPORT INFORMATION
  Report Type: 
  Country: None (occurrence: None)
  Receive Date: 20050407
  Receipt Date: 20050323
  Transmission Date: 20051028
  Serious: Yes (Hospitalization)
  Sender: FDA-Public Use
  Company Number: RENA-11306

PATIENT
  Age: 44 Year
  Sex: Male

DRUGS (8)
  1. PHOSBLOCK - 250 MG TABLETS [Suspect]
     Indication: HYPERPHOSPHATAEMIA
     Dosage: 1.5 G DAILY PO
     Route: 048
     Dates: start: 20041101
  2. PHOSBLOCK - 250 MG TABLETS [Suspect]
     Indication: HYPERPHOSPHATAEMIA
     Dosage: 0.75 DAILY PO
     Route: 048
     Dates: start: 20041025, end: 20041031
  3. CALCIUM CARBONATE [Concomitant]
  4. AMLODIPINE BESYLATE [Concomitant]
  5. VALSARTAN [Concomitant]
  6. CALCITRIOL [Concomitant]
  7. EPOETIN BETA [Concomitant]
  8. FEXOFENADINE HCL [Concomitant]

REACTIONS (1)
  - PNEUMONIA [None]
